FAERS Safety Report 21651640 (Version 1)
Quarter: 2022Q4

REPORT INFORMATION
  Report Type: Report from Study
  Country: US (occurrence: US)
  Receive Date: 20221128
  Receipt Date: 20221128
  Transmission Date: 20230113
  Serious: Yes (Other)
  Sender: FDA-Public Use
  Company Number: US-XERIS PHARMACEUTICALS-2022XER00401

PATIENT
  Sex: Female

DRUGS (1)
  1. RECORLEV [Suspect]
     Active Substance: LEVOKETOCONAZOLE
     Indication: Cushing^s syndrome
     Dosage: 2 TABLETS (300 MG), 2X/DAY
     Route: 048
     Dates: start: 20220923, end: 20221105

REACTIONS (2)
  - Liver disorder [Recovering/Resolving]
  - Cortisol decreased [Recovering/Resolving]

NARRATIVE: CASE EVENT DATE: 20220101
